FAERS Safety Report 10062939 (Version 1)
Quarter: 2014Q2

REPORT INFORMATION
  Report Type: Spontaneous
  Country: ES (occurrence: ES)
  Receive Date: 20140407
  Receipt Date: 20140407
  Transmission Date: 20141212
  Serious: Yes (Other)
  Sender: FDA-Public Use
  Company Number: ES-WATSON-2014-06340

PATIENT
  Age: 38 Year
  Sex: Male

DRUGS (9)
  1. LEVOFLOXACIN (UNKNOWN) [Suspect]
     Indication: PNEUMONIA
     Dosage: 500 MG, DAILY
     Route: 048
     Dates: start: 20100112
  2. LEVOFLOXACIN (UNKNOWN) [Suspect]
     Indication: EVIDENCE BASED TREATMENT
     Dosage: 500 MG, BID
     Route: 048
     Dates: start: 20100111, end: 20100111
  3. CLOZAPINE (UNKNOWN) [Suspect]
     Indication: PRODUCT USED FOR UNKNOWN INDICATION
     Dosage: UNK
     Route: 065
  4. OSELTAMIVIR [Concomitant]
     Indication: PNEUMONIA
     Dosage: 75 MG, BID
     Route: 048
  5. OSELTAMIVIR [Concomitant]
     Indication: EVIDENCE BASED TREATMENT
  6. ESCITALOPRAM [Concomitant]
     Indication: PRODUCT USED FOR UNKNOWN INDICATION
     Dosage: UNK
     Route: 065
  7. VALPROIC ACID [Concomitant]
     Indication: PRODUCT USED FOR UNKNOWN INDICATION
     Dosage: UNK
     Route: 065
  8. PANTOPRAZOLE [Concomitant]
     Indication: PRODUCT USED FOR UNKNOWN INDICATION
     Dosage: UNK
     Route: 065
  9. ARIPIPRAZOLE [Concomitant]
     Indication: PRODUCT USED FOR UNKNOWN INDICATION
     Dosage: UNK
     Route: 065

REACTIONS (2)
  - Delirium [Recovered/Resolved]
  - Hallucination, visual [Recovered/Resolved]
